FAERS Safety Report 8184659-1 (Version None)
Quarter: 2012Q1

REPORT INFORMATION
  Report Type: 
  Country: None (occurrence: None)
  Receive Date: 20120305
  Receipt Date: 20120222
  Transmission Date: 20120608
  Serious: Yes (Life-Threatening, Hospitalization)
  Sender: FDA-Public Use
  Company Number: JP-UCBSA-033846

PATIENT
  Age: 24 Year
  Sex: Female
  Weight: 50.5 kg

DRUGS (14)
  1. MINOCYCLINE HCL [Concomitant]
     Indication: COMPLEX PARTIAL SEIZURES
     Dosage: DAILY DOSE: 100 MG
     Route: 048
  2. PROGRAF [Concomitant]
     Indication: SIMPLE PARTIAL SEIZURES
     Dosage: DAILY DOSE: 3 MG
     Route: 048
  3. PHENYTOIN SODIUM CAP [Concomitant]
     Indication: SIMPLE PARTIAL SEIZURES
     Dosage: DAILY DOSE: 200 MG
     Route: 048
  4. PHENYTOIN [Concomitant]
     Indication: SIMPLE PARTIAL SEIZURES
     Dosage: DAILY DOSE: 87.5 MG
     Route: 048
  5. PHENOBARBITAL TAB [Concomitant]
     Indication: SIMPLE PARTIAL SEIZURES
     Dosage: DAILY DOSE: 75 MG
     Route: 048
  6. ONON [Concomitant]
     Indication: SIMPLE PARTIAL SEIZURES
     Dosage: DAILY DOSE: 225 MG
     Route: 048
  7. PROGRAF [Concomitant]
     Indication: COMPLEX PARTIAL SEIZURES
     Dosage: DAILY DOSE: 3 MG
     Route: 048
  8. PHENOBARBITAL TAB [Concomitant]
     Indication: COMPLEX PARTIAL SEIZURES
     Dosage: DAILY DOSE: 75 MG
     Route: 048
  9. MINOCYCLINE HCL [Concomitant]
     Indication: SIMPLE PARTIAL SEIZURES
     Dosage: DAILY DOSE: 100 MG
     Route: 048
  10. KEPPRA [Suspect]
     Indication: SIMPLE PARTIAL SEIZURES
     Route: 048
     Dates: start: 20110420, end: 20110510
  11. KEPPRA [Suspect]
     Indication: COMPLEX PARTIAL SEIZURES
     Route: 048
     Dates: start: 20110420, end: 20110510
  12. PHENYTOIN SODIUM CAP [Concomitant]
     Indication: COMPLEX PARTIAL SEIZURES
     Dosage: DAILY DOSE: 200 MG
     Route: 048
  13. PHENYTOIN [Concomitant]
     Indication: COMPLEX PARTIAL SEIZURES
     Dosage: DAILY DOSE: 87.5 MG
     Route: 048
  14. ONON [Concomitant]
     Indication: COMPLEX PARTIAL SEIZURES
     Dosage: DAILY DOSE: 225 MG
     Route: 048

REACTIONS (1)
  - STATUS EPILEPTICUS [None]
